FAERS Safety Report 8046872-3 (Version None)
Quarter: 2012Q1

REPORT INFORMATION
  Report Type: 
  Country: None (occurrence: None)
  Receive Date: 20120116
  Receipt Date: 20120105
  Transmission Date: 20120608
  Serious: Yes (Hospitalization)
  Sender: FDA-Public Use
  Company Number: IT-RANBAXY-2012RR-51782

PATIENT
  Age: 15 Year
  Sex: Female

DRUGS (3)
  1. AMOXICILLIN [Suspect]
     Indication: LIMB INJURY
     Dosage: 1 G/DAY
     Route: 048
     Dates: start: 20111128, end: 20111128
  2. TRAMADOL HYDROCHLORIDE AND ACETAMINOPHEN [Suspect]
     Indication: LIMB INJURY
     Dosage: 1 DF/DAY
     Route: 048
     Dates: start: 20111125, end: 20111127
  3. LEVOFLOXACIN [Suspect]
     Indication: LIMB INJURY
     Dosage: 1 DF, SINGLE
     Route: 048
     Dates: start: 20111127, end: 20111127

REACTIONS (5)
  - URTICARIA [None]
  - DIARRHOEA [None]
  - ABDOMINAL PAIN [None]
  - ANGIOEDEMA [None]
  - NAUSEA [None]
